APPROVED DRUG PRODUCT: ESTRADIOL
Active Ingredient: ESTRADIOL
Strength: 0.01%
Dosage Form/Route: CREAM;VAGINAL
Application: A209767 | Product #001 | TE Code: AB
Applicant: ENCUBE ETHICALS PRIVATE LTD
Approved: Mar 5, 2018 | RLD: No | RS: No | Type: RX